FAERS Safety Report 8261861 (Version 2)
Quarter: 2013Q2

REPORT INFORMATION
  Report Type: Spontaneous
  Country: US (occurrence: US)
  Receive Date: 20111123
  Receipt Date: 20130624
  Transmission Date: 20140414
  Serious: Yes (Other)
  Sender: FDA-Public Use
  Company Number: PHEH2011US009700

PATIENT
  Age: 64 Year
  Sex: Male

DRUGS (2)
  1. ZOMETA [Suspect]
     Indication: BONE DISORDER
  2. FORTEO [Concomitant]
     Indication: OSTEOPOROSIS
     Dosage: 20 UG, UNK
     Dates: start: 201109

REACTIONS (4)
  - Osteonecrosis of jaw [Unknown]
  - Jaw disorder [Unknown]
  - Tooth infection [Unknown]
  - Abdominal pain upper [Unknown]
